FAERS Safety Report 6496295-3 (Version None)
Quarter: 2009Q4

REPORT INFORMATION
  Report Type: 
  Country: None (occurrence: None)
  Receive Date: 20091210
  Receipt Date: 20091123
  Transmission Date: 20100525
  Serious: Yes (Other)
  Sender: FDA-Public Use
  Company Number: 09-001737

PATIENT
  Age: 62 Year
  Sex: Female

DRUGS (4)
  1. TACLONEX [Suspect]
     Indication: PSORIASIS
     Dosage: TOPICAL
     Route: 061
  2. PREDNISOLONE ACETATE [Concomitant]
  3. CHINESE HERBAL LOTION [Concomitant]
  4. FEXOFENADINE HCL [Concomitant]

REACTIONS (3)
  - ERYTHRODERMIC PSORIASIS [None]
  - OFF LABEL USE [None]
  - PYREXIA [None]
